FAERS Safety Report 17969049 (Version 1)
Quarter: 2020Q3

REPORT INFORMATION
  Report Type: Spontaneous
  Country: US (occurrence: US)
  Receive Date: 20200701
  Receipt Date: 20200701
  Transmission Date: 20201103
  Serious: No
  Sender: FDA-Public Use
  Company Number: US-PFM-2019-10584

PATIENT
  Sex: Female
  Weight: 5.88 kg

DRUGS (1)
  1. HEMANGEOL [Suspect]
     Active Substance: PROPRANOLOL HYDROCHLORIDE
     Indication: INFANTILE HAEMANGIOMA
     Dosage: 2 ML, BID (2/DAY)
     Route: 065
     Dates: start: 20190717

REACTIONS (3)
  - Weight gain poor [Unknown]
  - Infantile spitting up [Unknown]
  - Abdominal discomfort [Unknown]
